FAERS Safety Report 7428514-0 (Version None)
Quarter: 2011Q2

REPORT INFORMATION
  Report Type: 
  Country: None (occurrence: None)
  Receive Date: 20110413
  Receipt Date: 20110401
  Transmission Date: 20111010
  Serious: Yes (Hospitalization)
  Sender: FDA-Public Use
  Company Number: CIP11000852

PATIENT
  Age: 74 Year
  Sex: Female

DRUGS (7)
  1. MODURETIC 5-50 [Concomitant]
  2. TANAKAN /01003103/ (GINKGO BILOB EXTRACT) [Concomitant]
  3. PREVISCAN (FLUINDONE) TABLET, 20MG [Suspect]
     Indication: PHLEBITIS
     Dosage: 10 MG DAILY,ORAL
     Route: 048
     Dates: start: 20100101, end: 20110106
  4. NITROFURANTOIN [Suspect]
     Indication: URINARY TRACT INFECTION
     Dosage: 3 DOSE FORMS DAILY, ORAL
     Route: 048
     Dates: start: 20110103
  5. TRANDATE [Concomitant]
  6. METFORIN (METFORMIN) [Concomitant]
  7. FENOFIBRATE [Concomitant]

REACTIONS (3)
  - INTERNATIONAL NORMALISED RATIO INCREASED [None]
  - TOXICITY TO VARIOUS AGENTS [None]
  - DRUG INTERACTION [None]
